FAERS Safety Report 6915749-6 (Version None)
Quarter: 2010Q3

REPORT INFORMATION
  Report Type: 
  Country: None (occurrence: None)
  Receive Date: 20100810
  Receipt Date: 20100614
  Transmission Date: 20110219
  Serious: No
  Sender: FDA-Public Use
  Company Number: A0852439A

PATIENT
  Age: 37 Year
  Sex: Male

DRUGS (1)
  1. PAROXETINE HCL [Suspect]
     Indication: DEPRESSION
     Dosage: 37.5MG PER DAY
     Route: 065
     Dates: start: 20080601

REACTIONS (4)
  - ASTHENIA [None]
  - HEART RATE DECREASED [None]
  - PRODUCT QUALITY ISSUE [None]
  - TINNITUS [None]
